FAERS Safety Report 24009452 (Version 2)
Quarter: 2024Q4

REPORT INFORMATION
  Report Type: Spontaneous
  Country: JP (occurrence: JP)
  Receive Date: 20240625
  Receipt Date: 20241001
  Transmission Date: 20250115
  Serious: Yes (Hospitalization, Other)
  Sender: RANBAXY
  Company Number: JP-SUN PHARMACEUTICAL INDUSTRIES LTD-2024R1-449582

PATIENT
  Age: 40 Year
  Sex: Female

DRUGS (6)
  1. SULFAMETHOXAZOLE\TRIMETHOPRIM [Suspect]
     Active Substance: SULFAMETHOXAZOLE\TRIMETHOPRIM
     Indication: Staphylococcal bacteraemia
     Dosage: UNK
     Route: 048
  2. VANCOMYCIN [Suspect]
     Active Substance: VANCOMYCIN
     Indication: Thrombophlebitis septic
     Dosage: UNK
     Route: 042
  3. VANCOMYCIN [Suspect]
     Active Substance: VANCOMYCIN
     Indication: Staphylococcal bacteraemia
     Dosage: 1.5 GRAM, BID
     Route: 042
  4. CEFMETAZOLE [Suspect]
     Active Substance: CEFMETAZOLE
     Indication: Amniotic cavity infection
     Dosage: 1 GRAM, TID
     Route: 065
  5. EDOXABAN [Suspect]
     Active Substance: EDOXABAN
     Indication: Thrombosis
     Dosage: 30 MILLIGRAM, DAILY
     Route: 048
  6. RIFAMPIN [Suspect]
     Active Substance: RIFAMPIN
     Indication: Staphylococcal bacteraemia
     Dosage: 300 MILLIGRAM, DAILY
     Route: 065

REACTIONS (5)
  - Disease progression [Unknown]
  - Exposure during pregnancy [Unknown]
  - Thrombophlebitis septic [Recovered/Resolved]
  - Staphylococcal bacteraemia [Recovered/Resolved]
  - Live birth [Unknown]
